FAERS Safety Report 15588474 (Version 1)
Quarter: 2018Q4

REPORT INFORMATION
  Report Type: Spontaneous
  Country: US (occurrence: US)
  Receive Date: 20181105
  Receipt Date: 20181105
  Transmission Date: 20190205
  Serious: Yes (Hospitalization)
  Sender: FDA-Public Use
  Company Number: US-BAXTER-2018BAX027056

PATIENT

DRUGS (2)
  1. AVASTIN [Suspect]
     Active Substance: BEVACIZUMAB
     Indication: PRODUCT USED FOR UNKNOWN INDICATION
     Dosage: 600 MG AVASTIN MIXED IN 100 ML NACL
     Route: 065
     Dates: start: 20181003, end: 20181003
  2. 0.9% SODIUM CHLORIDE INJECTION, USP IN MINI-BAG PLUS CONTAINER [Suspect]
     Active Substance: SODIUM CHLORIDE
     Indication: MEDICATION DILUTION
     Dosage: 600 MG AVASTIN MIXED IN 100 ML NACL
     Route: 065
     Dates: start: 20181003, end: 20181003

REACTIONS (7)
  - Dyspnoea [Recovering/Resolving]
  - Chest pain [Recovering/Resolving]
  - Hypertension [Recovering/Resolving]
  - Feeling cold [Recovering/Resolving]
  - Chest discomfort [Recovering/Resolving]
  - Heart rate increased [Recovering/Resolving]
  - Nausea [Recovering/Resolving]

NARRATIVE: CASE EVENT DATE: 20181003
